FAERS Safety Report 9954498 (Version 1)
Quarter: 2014Q1

REPORT INFORMATION
  Report Type: Spontaneous
  Country: US (occurrence: US)
  Receive Date: 20140304
  Receipt Date: 20140304
  Transmission Date: 20141002
  Serious: No
  Sender: FDA-Public Use
  Company Number: US-ABBVIE-13P-163-1082877-00

PATIENT
  Sex: Female
  Weight: 58.57 kg

DRUGS (7)
  1. HUMIRA [Suspect]
     Indication: COLITIS ULCERATIVE
     Dates: start: 2012, end: 201304
  2. HUMIRA [Suspect]
     Dates: start: 201304
  3. METHOTREXATE [Concomitant]
     Indication: COLITIS ULCERATIVE
  4. FOSAMAX [Concomitant]
     Indication: BONE DENSITY DECREASED
  5. LIALDA [Concomitant]
     Indication: COLITIS ULCERATIVE
  6. FOLIC ACID [Concomitant]
     Indication: VITAMIN SUPPLEMENTATION
  7. ODANSETRON [Concomitant]
     Indication: NAUSEA

REACTIONS (2)
  - Injection site pain [Not Recovered/Not Resolved]
  - Colitis ulcerative [Recovered/Resolved]
